FAERS Safety Report 7138265-8 (Version None)
Quarter: 2010Q4

REPORT INFORMATION
  Report Type: 
  Country: None (occurrence: None)
  Receive Date: 20101206
  Receipt Date: 20101021
  Transmission Date: 20110411
  Serious: No
  Sender: FDA-Public Use
  Company Number: US-BAYER-201022829BCC

PATIENT
  Sex: Male
  Weight: 63.636 kg

DRUGS (2)
  1. ALEVE (CAPLET) [Suspect]
     Indication: HEADACHE
     Dosage: UNK
     Route: 048
     Dates: start: 20101021
  2. UNCODEABLE ^UNCLASSIFIABLE^ [Concomitant]

REACTIONS (2)
  - NAUSEA [None]
  - VOMITING [None]
